FAERS Safety Report 16985406 (Version 1)
Quarter: 2019Q4

REPORT INFORMATION
  Report Type: Spontaneous
  Country: US (occurrence: US)
  Receive Date: 20191101
  Receipt Date: 20191101
  Transmission Date: 20200122
  Serious: Yes (Other)
  Sender: FDA-Public Use
  Company Number: PHHY2019US146247

PATIENT
  Age: 49 Year
  Sex: Male

DRUGS (1)
  1. PAZOPANIB [Suspect]
     Active Substance: PAZOPANIB
     Indication: RENAL CELL CARCINOMA
     Dosage: 800 MG, QD
     Route: 048
     Dates: start: 201706

REACTIONS (4)
  - Metastases to bone [Recovering/Resolving]
  - Renal cell carcinoma [Recovering/Resolving]
  - Cancer pain [Recovering/Resolving]
  - Malignant neoplasm progression [Recovering/Resolving]
